FAERS Safety Report 6326416-4 (Version None)
Quarter: 2009Q3

REPORT INFORMATION
  Report Type: 
  Country: None (occurrence: None)
  Receive Date: 20090825
  Receipt Date: 20090814
  Transmission Date: 20100115
  Serious: No
  Sender: FDA-Public Use
  Company Number: US-BIOGENIDEC-2009BI022776

PATIENT
  Sex: Male

DRUGS (5)
  1. TYSABRI [Suspect]
     Indication: MULTIPLE SCLEROSIS
     Route: 042
     Dates: start: 20081120
  2. BACLOFEN [Concomitant]
     Indication: DRUG USE FOR UNKNOWN INDICATION
  3. PROVIGIL [Concomitant]
     Indication: DRUG USE FOR UNKNOWN INDICATION
  4. LUNESTA [Concomitant]
     Indication: SLEEP DISORDER
  5. TRAZODONE HCL [Concomitant]
     Indication: SLEEP DISORDER

REACTIONS (7)
  - BLINDNESS [None]
  - HEARING IMPAIRED [None]
  - MULTIPLE SCLEROSIS [None]
  - PARALYSIS [None]
  - SPEECH DISORDER [None]
  - TEMPERATURE INTOLERANCE [None]
  - VISUAL IMPAIRMENT [None]
